FAERS Safety Report 5904705-2 (Version None)
Quarter: 2008Q3

REPORT INFORMATION
  Report Type: 
  Country: None (occurrence: None)
  Receive Date: 20080909
  Receipt Date: 20080616
  Transmission Date: 20090109
  Serious: Yes (Disabling)
  Sender: FDA-Public Use
  Company Number: 163-20785-08042024

PATIENT
  Age: 66 Year
  Sex: Female

DRUGS (7)
  1. THALOMID [Suspect]
     Indication: MULTIPLE MYELOMA
     Dosage: 200 MG, 4 IN 1 D, ORAL
     Route: 048
     Dates: start: 20050701, end: 20071212
  2. ZETIA [Concomitant]
  3. LORTREL (LOTREL) [Concomitant]
  4. PROZAC [Concomitant]
  5. SENNA (SENNA) [Concomitant]
  6. CALCIUM (CALCIUM) [Concomitant]
  7. ASPIRIN [Concomitant]

REACTIONS (2)
  - DISEASE PROGRESSION [None]
  - NEUROPATHY PERIPHERAL [None]
